FAERS Safety Report 6074656-4 (Version None)
Quarter: 2009Q1

REPORT INFORMATION
  Report Type: 
  Country: None (occurrence: None)
  Receive Date: 20090209
  Receipt Date: 20090128
  Transmission Date: 20090719
  Serious: Yes (Other)
  Sender: FDA-Public Use
  Company Number: 440004K09USA

PATIENT
  Sex: Male

DRUGS (8)
  1. SEROSTIM [Suspect]
     Indication: OFF LABEL USE
     Dosage: 6 MG, 1 IN 1 DAYS, SUBCUTANEOUS
     Route: 058
     Dates: start: 20081007, end: 20081013
  2. NORVIR [Concomitant]
  3. REYATAZ [Concomitant]
  4. LEXIVA [Concomitant]
  5. ISENTRIF        (ALL OTHER THERAPEUTIC PRODUCTS) [Concomitant]
  6. LIPITOR [Concomitant]
  7. METOPROLOL (METOPROLOL /00376901/) [Concomitant]
  8. RAMITRIL (ALL OTHER THERAPEUTIC PRODUCTS) [Concomitant]

REACTIONS (4)
  - HYPOKINESIA [None]
  - LACERATION [None]
  - PAIN IN EXTREMITY [None]
  - SENSORY DISTURBANCE [None]
